FAERS Safety Report 5450345-1 (Version None)
Quarter: 2007Q3

REPORT INFORMATION
  Report Type: 
  Country: None (occurrence: None)
  Receive Date: 20070912
  Receipt Date: 20070831
  Transmission Date: 20080115
  Serious: Yes (Disabling)
  Sender: FDA-Public Use
  Company Number: GB-PFIZER INC-2007072972

PATIENT
  Age: 54 Year
  Sex: Female

DRUGS (2)
  1. CHAMPIX [Suspect]
     Indication: SMOKING CESSATION THERAPY
     Route: 048
     Dates: start: 20070618, end: 20070709
  2. IBUPROFEN [Concomitant]
     Route: 048

REACTIONS (2)
  - EAR DISORDER [None]
  - HYPOAESTHESIA [None]
